FAERS Safety Report 18920377 (Version 1)
Quarter: 2021Q1

REPORT INFORMATION
  Report Type: Spontaneous
  Country: NO (occurrence: NO)
  Receive Date: 20210222
  Receipt Date: 20210222
  Transmission Date: 20210420
  Serious: Yes (Hospitalization)
  Sender: FDA-Public Use
  Company Number: NO-SUN PHARMACEUTICAL INDUSTRIES LTD-2021RR-282047

PATIENT
  Age: 68 Year
  Sex: Male
  Weight: 73 kg

DRUGS (2)
  1. CREON 25000 ENTEROKAPS 25000 E/18000 E/1000 E [Concomitant]
     Indication: DYSPEPSIA
     Dosage: 3 X DAILY
     Route: 065
     Dates: start: 202012
  2. GEMCITABINE. [Suspect]
     Active Substance: GEMCITABINE
     Indication: PANCREATIC CARCINOMA
     Dosage: 75 % OF FULL DOSE (CYTOSTATIKUM), UNK
     Route: 065
     Dates: start: 20210121

REACTIONS (5)
  - Rash [Unknown]
  - Headache [Unknown]
  - Pyrexia [Recovered/Resolved]
  - Urticaria [Recovering/Resolving]
  - Asthenia [Unknown]

NARRATIVE: CASE EVENT DATE: 20210128
